FAERS Safety Report 17580067 (Version 1)
Quarter: 2020Q1

REPORT INFORMATION
  Report Type: Spontaneous
  Country: US (occurrence: US)
  Receive Date: 20200324
  Receipt Date: 20200324
  Transmission Date: 20200409
  Serious: No
  Sender: FDA-Public Use
  Company Number: None

PATIENT
  Age: 45 Year
  Sex: Female

DRUGS (1)
  1. HUMIRA [Suspect]
     Active Substance: ADALIMUMAB
     Indication: RHEUMATOID ARTHRITIS
     Dosage: ?          OTHER FREQUENCY:ONCE EVERY 2 WEEK;?
     Route: 058
     Dates: start: 20191125, end: 20200220

REACTIONS (6)
  - Sneezing [None]
  - Rash [None]
  - Sinusitis [None]
  - Cough [None]
  - Pain [None]
  - Headache [None]

NARRATIVE: CASE EVENT DATE: 20200320
